FAERS Safety Report 6720847-6 (Version None)
Quarter: 2010Q2

REPORT INFORMATION
  Report Type: 
  Country: None (occurrence: None)
  Receive Date: 20100512
  Receipt Date: 20100504
  Transmission Date: 20101027
  Serious: No
  Sender: FDA-Public Use
  Company Number: US-BIOGENIDEC-2010BI015339

PATIENT
  Age: 41 Year
  Sex: Female

DRUGS (3)
  1. TYSABRI [Suspect]
     Indication: MULTIPLE SCLEROSIS
     Route: 042
     Dates: start: 20070501, end: 20080114
  2. TYSABRI [Suspect]
     Route: 042
     Dates: start: 20080619, end: 20091020
  3. TYSABRI [Suspect]
     Route: 042
     Dates: start: 20100504, end: 20100504

REACTIONS (1)
  - PRURITUS [None]
